FAERS Safety Report 4645922-1 (Version None)
Quarter: 2005Q2

REPORT INFORMATION
  Report Type: 
  Country: None (occurrence: None)
  Receive Date: 20050427
  Receipt Date: 20050414
  Transmission Date: 20051028
  Serious: Yes (Other)
  Sender: FDA-Public Use
  Company Number: FRWYE591515APR05

PATIENT
  Age: 52 Year
  Sex: Male

DRUGS (3)
  1. ENBREL [Suspect]
     Indication: PSORIATIC ARTHROPATHY
     Dosage: UNKNOWN
     Route: 058
     Dates: start: 20050318
  2. METHOTREXATE [Suspect]
     Dates: start: 20041001, end: 20050101
  3. NSAID [Suspect]
     Dates: end: 20050101

REACTIONS (1)
  - CYTOLYTIC HEPATITIS [None]
